FAERS Safety Report 4820799-X (Version None)
Quarter: 2005Q4

REPORT INFORMATION
  Report Type: 
  Country: None (occurrence: None)
  Receive Date: 20051104
  Receipt Date: 20051031
  Transmission Date: 20060501
  Serious: Yes (Hospitalization)
  Sender: FDA-Public Use
  Company Number: US-JNJFOC-20050705866

PATIENT
  Sex: Female
  Weight: 54.43 kg

DRUGS (2)
  1. FENTANYL [Suspect]
     Route: 062
  2. KADIAN [Concomitant]
     Indication: PAIN
     Route: 048

REACTIONS (2)
  - DEPRESSION [None]
  - PAIN [None]
